FAERS Safety Report 13298853 (Version 1)
Quarter: 2017Q1

REPORT INFORMATION
  Report Type: Report from Study
  Country: US (occurrence: US)
  Receive Date: 20170306
  Receipt Date: 20170306
  Transmission Date: 20170428
  Serious: Yes (Other)
  Sender: FDA-Public Use
  Company Number: US-JNJFOC-20170223829

PATIENT
  Age: 36 Year
  Sex: Female
  Weight: 63.05 kg

DRUGS (1)
  1. STELARA [Suspect]
     Active Substance: USTEKINUMAB
     Indication: CROHN^S DISEASE
     Route: 042
     Dates: start: 20170215, end: 20170215

REACTIONS (7)
  - Feeling abnormal [Unknown]
  - Fatigue [Unknown]
  - Pharyngeal oedema [Recovered/Resolved]
  - Infusion related reaction [Recovered/Resolved]
  - Language disorder [Unknown]
  - Muscular weakness [Unknown]
  - Hypersomnia [Unknown]

NARRATIVE: CASE EVENT DATE: 20170215
